FAERS Safety Report 5720994-1 (Version None)
Quarter: 2008Q2

REPORT INFORMATION
  Report Type: 
  Country: None (occurrence: None)
  Receive Date: 20080424
  Receipt Date: 20080411
  Transmission Date: 20081010
  Serious: Yes (Other)
  Sender: FDA-Public Use
  Company Number: 233494J08USA

PATIENT
  Age: 26 Year
  Sex: Male

DRUGS (5)
  1. REBIF [Suspect]
     Indication: MULTIPLE SCLEROSIS
     Dosage: 44 MCG, 3 IN 1 WEEKS, SUBCUTANEOUS
     Route: 058
     Dates: start: 20080128, end: 20080414
  2. VALIUM [Concomitant]
  3. LORCET (VICODIN) [Concomitant]
  4. BACLOFEN [Concomitant]
  5. CELEXA [Concomitant]

REACTIONS (5)
  - CHILLS [None]
  - DECUBITUS ULCER [None]
  - IMPAIRED HEALING [None]
  - OPEN WOUND [None]
  - TREMOR [None]
